FAERS Safety Report 7349150-0 (Version None)
Quarter: 2011Q1

REPORT INFORMATION
  Report Type: 
  Country: None (occurrence: None)
  Receive Date: 20110314
  Receipt Date: 20110228
  Transmission Date: 20110831
  Serious: Yes (Hospitalization, Other)
  Sender: FDA-Public Use
  Company Number: US-TEVA-269310USA

PATIENT
  Age: 48 Year
  Sex: Male

DRUGS (1)
  1. METOPROLOL TARTRATE TABLETS USP 50MG + 100MG [Suspect]
     Indication: HYPERTENSION

REACTIONS (1)
  - STRESS CARDIOMYOPATHY [None]
